FAERS Safety Report 13573932 (Version 2)
Quarter: 2017Q2

REPORT INFORMATION
  Report Type: Other
  Country: CN (occurrence: CN)
  Receive Date: 20170523
  Receipt Date: 20170605
  Transmission Date: 20170830
  Serious: Yes (Other)
  Sender: FDA-Public Use
  Company Number: CN-ARALEZ PHARMACEUTICALS R+D INC.-ARA-TP-CN-2017-595

PATIENT
  Age: 75 Year
  Sex: Male

DRUGS (7)
  1. BETALOC [Suspect]
     Active Substance: METOPROLOL TARTRATE
     Indication: MYOCARDIAL INFARCTION
  2. DANQI [Concomitant]
     Indication: PRODUCT USED FOR UNKNOWN INDICATION
     Route: 065
  3. METOPROLOL SUCCINATE. [Suspect]
     Active Substance: METOPROLOL SUCCINATE
     Indication: PRODUCT USED FOR UNKNOWN INDICATION
     Dosage: 47.5MG (1/4 TAB IN THE MORNING, 1/4 TAB IN THE AFTERNOON AND 1/2 TAB IN THE EVENING)
     Route: 048
  4. BETALOC [Suspect]
     Active Substance: METOPROLOL TARTRATE
     Indication: CORONARY ARTERY DISEASE
     Route: 065
     Dates: start: 2007
  5. ISOSORBIDE DINITRATE. [Concomitant]
     Active Substance: ISOSORBIDE DINITRATE
     Indication: PRODUCT USED FOR UNKNOWN INDICATION
     Route: 065
  6. BETALOC [Suspect]
     Active Substance: METOPROLOL TARTRATE
     Indication: ARRHYTHMIA
  7. DANSHEN [Concomitant]
     Active Substance: HERBALS
     Indication: PRODUCT USED FOR UNKNOWN INDICATION
     Route: 065

REACTIONS (3)
  - Blood pressure fluctuation [Unknown]
  - Drug effect decreased [Unknown]
  - Lung neoplasm malignant [Unknown]
